FAERS Safety Report 21249503 (Version 4)
Quarter: 2022Q4

REPORT INFORMATION
  Report Type: Report from Study
  Country: CA (occurrence: CA)
  Receive Date: 20220824
  Receipt Date: 20221229
  Transmission Date: 20230113
  Serious: Yes (Hospitalization, Other)
  Sender: FDA-Public Use
  Company Number: CA-TAKEDA-CA202022740

PATIENT
  Age: 67 Year
  Sex: Male
  Weight: 64 kg

DRUGS (12)
  1. VELAGLUCERASE ALFA [Suspect]
     Active Substance: VELAGLUCERASE ALFA
     Indication: Gaucher^s disease
     Dosage: 11 DOSAGE FORM, 2/WEEK
     Route: 050
  2. VELAGLUCERASE ALFA [Suspect]
     Active Substance: VELAGLUCERASE ALFA
     Dosage: 11 DOSAGE FORM, 2/WEEK
     Route: 050
  3. VELAGLUCERASE ALFA [Suspect]
     Active Substance: VELAGLUCERASE ALFA
     Dosage: 11 DOSAGE FORM, 2/WEEK
     Route: 050
     Dates: start: 20120101
  4. VELAGLUCERASE ALFA [Suspect]
     Active Substance: VELAGLUCERASE ALFA
     Dosage: 10 DOSAGE FORM, Q2WEEKS
     Route: 050
     Dates: start: 20120101
  5. VELAGLUCERASE ALFA [Suspect]
     Active Substance: VELAGLUCERASE ALFA
     Dosage: 11 DOSAGE FORM, 2/WEEK
     Route: 050
     Dates: start: 20120101
  6. VELAGLUCERASE ALFA [Suspect]
     Active Substance: VELAGLUCERASE ALFA
     Dosage: 11 DOSAGE FORM, 2/WEEK
     Route: 050
     Dates: start: 20120101
  7. VELAGLUCERASE ALFA [Suspect]
     Active Substance: VELAGLUCERASE ALFA
     Dosage: 10 DOSAGE FORM, Q2WEEKS
     Route: 050
     Dates: start: 20120101
  8. VITAMIN D [Concomitant]
     Active Substance: VITAMIN D NOS
  9. CALCIUM [Concomitant]
     Active Substance: CALCIUM
  10. REPAGLINIDE [Concomitant]
     Active Substance: REPAGLINIDE
  11. VITAMIN B [Concomitant]
     Active Substance: VITAMIN B
  12. LANTUS [Concomitant]
     Active Substance: INSULIN GLARGINE

REACTIONS (11)
  - Intervertebral disc protrusion [Recovered/Resolved]
  - Weight fluctuation [Not Recovered/Not Resolved]
  - COVID-19 [Unknown]
  - Drug hypersensitivity [Unknown]
  - Bone pain [Not Recovered/Not Resolved]
  - Abdominal pain [Not Recovered/Not Resolved]
  - Nausea [Not Recovered/Not Resolved]
  - Fatigue [Not Recovered/Not Resolved]
  - Tooth infection [Recovering/Resolving]
  - Inappropriate schedule of product administration [Unknown]
  - Incorrect dose administered [Unknown]

NARRATIVE: CASE EVENT DATE: 20210805
